FAERS Safety Report 18021261 (Version 1)
Quarter: 2020Q3

REPORT INFORMATION
  Report Type: Spontaneous
  Country: FR (occurrence: FR)
  Receive Date: 20200714
  Receipt Date: 20200714
  Transmission Date: 20201103
  Serious: Yes (Death, Other)
  Sender: FDA-Public Use
  Company Number: FR-ABBVIE-16K-056-3040235-00

PATIENT
  Age: 72 Year
  Sex: Male
  Weight: 80 kg

DRUGS (9)
  1. IMBRUVICA [Suspect]
     Active Substance: IBRUTINIB
     Route: 048
     Dates: start: 20150216, end: 201503
  2. APROVEL [Concomitant]
     Active Substance: IRBESARTAN
     Indication: HYPERTENSION
     Dosage: DOSAGE FORM: UNSPECIFIED
     Route: 065
  3. IMBRUVICA [Suspect]
     Active Substance: IBRUTINIB
     Indication: CHRONIC LYMPHOCYTIC LEUKAEMIA
     Route: 048
     Dates: start: 201503, end: 20150331
  4. IRBESARTAN. [Concomitant]
     Active Substance: IRBESARTAN
     Indication: PRODUCT USED FOR UNKNOWN INDICATION
     Dosage: DOSAGE FORM: UNSPECIFIED
     Route: 065
  5. PARACETAMOL [Concomitant]
     Active Substance: ACETAMINOPHEN
     Indication: PRODUCT USED FOR UNKNOWN INDICATION
     Dosage: DOSAGE FORM: UNSPECIFIED
     Route: 065
  6. GAMMANORM [Concomitant]
     Active Substance: HUMAN IMMUNOGLOBULIN G
     Indication: PRODUCT USED FOR UNKNOWN INDICATION
     Dosage: DOSAGE FORM: UNSPECIFIED
     Route: 058
  7. IMBRUVICA [Suspect]
     Active Substance: IBRUTINIB
     Indication: B-CELL LYMPHOMA
     Route: 048
     Dates: start: 20150703, end: 20160125
  8. GRANOCYTE [Concomitant]
     Active Substance: LENOGRASTIM
     Indication: BONE MARROW DISORDER
     Dosage: DOSAGE FORM: UNSPECIFIED
     Route: 065
  9. FUROSEMIDE. [Concomitant]
     Active Substance: FUROSEMIDE
     Indication: PRODUCT USED FOR UNKNOWN INDICATION
     Dosage: DOSAGE FORM: UNSPECIFIED
     Route: 065

REACTIONS (5)
  - Neurological decompensation [Fatal]
  - Gastrointestinal disorder [Recovered/Resolved]
  - Ejection fraction decreased [Recovered/Resolved]
  - Drug intolerance [Unknown]
  - Gastrointestinal disorder [Recovered/Resolved]

NARRATIVE: CASE EVENT DATE: 201503
